FAERS Safety Report 8174225-6 (Version None)
Quarter: 2012Q1

REPORT INFORMATION
  Report Type: 
  Country: None (occurrence: None)
  Receive Date: 20120229
  Receipt Date: 20120221
  Transmission Date: 20120608
  Serious: Yes (Hospitalization)
  Sender: FDA-Public Use
  Company Number: US-JNJFOC-20111206054

PATIENT
  Sex: Female
  Weight: 137.44 kg

DRUGS (6)
  1. LOMOTIL [Concomitant]
     Route: 065
  2. ATACAND [Concomitant]
     Route: 065
  3. NEXIUM [Concomitant]
     Route: 065
  4. REMICADE [Suspect]
     Indication: CROHN'S DISEASE
     Route: 042
  5. REMICADE [Suspect]
     Dosage: 7 VIALS
     Route: 042
     Dates: start: 20110928
  6. LIALDA [Concomitant]
     Route: 065

REACTIONS (2)
  - RASH PRURITIC [None]
  - PANCREATITIS [None]
